FAERS Safety Report 9563408 (Version 1)
Quarter: 2013Q3

REPORT INFORMATION
  Report Type: Spontaneous
  Country: US (occurrence: None)
  Receive Date: 20130926
  Receipt Date: 20130926
  Transmission Date: 20140515
  Serious: Yes (Hospitalization)
  Sender: FDA-Public Use
  Company Number: None

PATIENT
  Age: 47 Year
  Sex: Female
  Weight: 74.5 kg

DRUGS (15)
  1. CEFEPIME [Suspect]
     Indication: FEBRILE NEUTROPENIA
     Dates: start: 20110609, end: 20110612
  2. DALTEPARIN [Concomitant]
  3. ACETAMINOPHEN [Concomitant]
  4. ALLOPURINOL [Concomitant]
  5. DOCUSATE [Concomitant]
  6. LORAZEPAM [Concomitant]
  7. NICOTINE [Concomitant]
  8. NYSTATIN [Concomitant]
  9. ONDANSETRON [Concomitant]
  10. OXYCODONE [Concomitant]
  11. PEG3350 [Concomitant]
  12. SENNA [Concomitant]
  13. ZINC OXIDE [Concomitant]
  14. SIMETHICONE [Concomitant]
  15. TEMAZEPAM [Concomitant]

REACTIONS (1)
  - Drug hypersensitivity [None]
